FAERS Safety Report 10914728 (Version 6)
Quarter: 2015Q2

REPORT INFORMATION
  Report Type: Spontaneous
  Country: IT (occurrence: IT)
  Receive Date: 20150313
  Receipt Date: 20150512
  Transmission Date: 20150821
  Serious: Yes (Hospitalization)
  Sender: FDA-Public Use
  Company Number: IT-ROCHE-1551530

PATIENT
  Age: 69 Year
  Sex: Male

DRUGS (3)
  1. METFORMIN [Concomitant]
     Active Substance: METFORMIN HYDROCHLORIDE
  2. LUCENTIS [Suspect]
     Active Substance: RANIBIZUMAB
     Indication: DIABETIC RETINAL OEDEMA
     Route: 050
     Dates: start: 20150204
  3. REPAGLINIDE. [Concomitant]
     Active Substance: REPAGLINIDE

REACTIONS (1)
  - Ischaemia [Recovered/Resolved with Sequelae]

NARRATIVE: CASE EVENT DATE: 20150220
